FAERS Safety Report 15881450 (Version 2)
Quarter: 2020Q1

REPORT INFORMATION
  Report Type: Spontaneous
  Country: US (occurrence: US)
  Receive Date: 20190128
  Receipt Date: 20200130
  Transmission Date: 20200409
  Serious: No
  Sender: FDA-Public Use
  Company Number: US-SA-2017SA034907

PATIENT
  Age: 63 Year
  Sex: Female

DRUGS (4)
  1. LANTUS SOLOSTAR [Suspect]
     Active Substance: INSULIN GLARGINE
     Indication: DIABETES MELLITUS
     Dosage: 10 DF,QD
     Route: 065
     Dates: start: 201702
  2. LANTUS SOLOSTAR [Suspect]
     Active Substance: INSULIN GLARGINE
     Dosage: 25 UNK
     Route: 065
  3. LANTUS SOLOSTAR [Suspect]
     Active Substance: INSULIN GLARGINE
     Dosage: 10 U, QD
     Route: 065
  4. BYETTA [Concomitant]
     Active Substance: EXENATIDE
     Dosage: UNK
     Route: 065

REACTIONS (6)
  - Malaise [Unknown]
  - Intentional dose omission [Unknown]
  - Injection site discolouration [Unknown]
  - Device operational issue [Unknown]
  - Anxiety [Unknown]
  - Abdominal pain upper [Unknown]

NARRATIVE: CASE EVENT DATE: 201702
